FAERS Safety Report 19768308 (Version 1)
Quarter: 2021Q3

REPORT INFORMATION
  Report Type: Spontaneous
  Country: US (occurrence: US)
  Receive Date: 20210831
  Receipt Date: 20210831
  Transmission Date: 20211014
  Serious: Yes (Hospitalization)
  Sender: FDA-Public Use
  Company Number: US-ROCHE-2899081

PATIENT
  Age: 49 Year
  Sex: Female
  Weight: 56.75 kg

DRUGS (7)
  1. IBUPROFEN. [Concomitant]
     Active Substance: IBUPROFEN
     Dosage: TAKES AS NEEDED
     Route: 048
  2. ZETIA [Concomitant]
     Active Substance: EZETIMIBE
     Route: 048
  3. TYLENOL [Concomitant]
     Active Substance: ACETAMINOPHEN
     Dosage: TAKES AS NEEDED
     Route: 048
  4. SOLU?MEDROL [Concomitant]
     Active Substance: METHYLPREDNISOLONE SODIUM SUCCINATE
     Indication: MULTIPLE SCLEROSIS
     Dosage: GIVEN AS ONE DOSE ON 10?AUG?2021
     Route: 042
     Dates: start: 20210810, end: 20210810
  5. METHOCARBAMOL. [Concomitant]
     Active Substance: METHOCARBAMOL
     Route: 048
  6. BIRTH CONTROL PILL (UNK INGREDIENTS) [Concomitant]
     Route: 048
  7. OCREVUS [Suspect]
     Active Substance: OCRELIZUMAB
     Indication: MULTIPLE SCLEROSIS
     Route: 042

REACTIONS (3)
  - Ataxia [Unknown]
  - Gait spastic [Unknown]
  - Hemiparesis [Unknown]

NARRATIVE: CASE EVENT DATE: 20210420
